FAERS Safety Report 15411491 (Version 3)
Quarter: 2018Q4

REPORT INFORMATION
  Report Type: Spontaneous
  Country: US (occurrence: US)
  Receive Date: 20180921
  Receipt Date: 20181105
  Transmission Date: 20190204
  Serious: No
  Sender: FDA-Public Use
  Company Number: US-JNJFOC-20180907965

PATIENT
  Sex: Male
  Weight: 68.04 kg

DRUGS (7)
  1. UROCIT-K [Concomitant]
     Active Substance: POTASSIUM CITRATE
     Route: 065
  2. VERDESO [Concomitant]
     Active Substance: DESONIDE
     Indication: PSORIASIS
     Route: 061
  3. CIALIS [Concomitant]
     Active Substance: TADALAFIL
     Route: 065
  4. STELARA [Suspect]
     Active Substance: USTEKINUMAB
     Indication: PSORIASIS
     Route: 058
     Dates: start: 2015, end: 201806
  5. ELIDEL [Concomitant]
     Active Substance: PIMECROLIMUS
     Indication: PSORIASIS
     Route: 061
  6. RANITIDINE. [Concomitant]
     Active Substance: RANITIDINE
     Route: 065
  7. ASPIRIN. [Concomitant]
     Active Substance: ASPIRIN
     Route: 065

REACTIONS (1)
  - Therapeutic response decreased [Unknown]
